FAERS Safety Report 14117332 (Version 3)
Quarter: 2018Q1

REPORT INFORMATION
  Report Type: Spontaneous
  Country: US (occurrence: US)
  Receive Date: 20171023
  Receipt Date: 20180316
  Transmission Date: 20180508
  Serious: No
  Sender: FDA-Public Use
  Company Number: US-BIOGEN-2017BI00474225

PATIENT
  Sex: Female

DRUGS (2)
  1. AVONEX [Suspect]
     Active Substance: INTERFERON BETA-1A
     Route: 030
     Dates: start: 20180307
  2. AVONEX [Suspect]
     Active Substance: INTERFERON BETA-1A
     Indication: MULTIPLE SCLEROSIS
     Route: 030
     Dates: start: 19950801, end: 201803

REACTIONS (7)
  - Injection site pain [Unknown]
  - Wrong technique in product usage process [Unknown]
  - Vision blurred [Unknown]
  - Bone pain [Unknown]
  - Arthralgia [Unknown]
  - Influenza like illness [Recovered/Resolved]
  - Memory impairment [Unknown]
